FAERS Safety Report 24035156 (Version 2)
Quarter: 2024Q3

REPORT INFORMATION
  Report Type: Spontaneous
  Country: US (occurrence: US)
  Receive Date: 20240701
  Receipt Date: 20240903
  Transmission Date: 20241016
  Serious: No
  Sender: MERZ
  Company Number: US-Merz Pharmaceuticals GmbH-24-02288

PATIENT
  Age: 47 Year
  Sex: Female
  Weight: 52.2 kg

DRUGS (2)
  1. XEOMIN [Suspect]
     Active Substance: INCOBOTULINUMTOXINA
     Indication: Product used for unknown indication
     Dosage: 28 025
     Route: 030
     Dates: start: 20240528, end: 20240528
  2. XEOMIN [Suspect]
     Active Substance: INCOBOTULINUMTOXINA
     Dosage: 28 025
     Route: 058
     Dates: start: 20240528, end: 20240528

REACTIONS (2)
  - Drug ineffective [Unknown]
  - Incorrect route of product administration [Unknown]

NARRATIVE: CASE EVENT DATE: 20240101
